FAERS Safety Report 4758426-2 (Version None)
Quarter: 2005Q3

REPORT INFORMATION
  Report Type: 
  Country: None (occurrence: None)
  Receive Date: 20050826
  Receipt Date: 20050811
  Transmission Date: 20060218
  Serious: Yes (Hospitalization)
  Sender: FDA-Public Use
  Company Number: 2005P1000226

PATIENT
  Age: 32 Year
  Sex: Female

DRUGS (2)
  1. CARDENE [Suspect]
     Indication: THREATENED LABOUR
  2. CORTICOSTEROID NOS [Concomitant]

REACTIONS (6)
  - CONDITION AGGRAVATED [None]
  - DRUG EXPOSURE DURING PREGNANCY [None]
  - DYSPNOEA [None]
  - HEADACHE [None]
  - RASH [None]
  - TACHYCARDIA [None]
